FAERS Safety Report 9071924 (Version 1)
Quarter: 2013Q1

REPORT INFORMATION
  Report Type: Report from Study
  Country: US (occurrence: US)
  Receive Date: 20130129
  Receipt Date: 20130129
  Transmission Date: 20140127
  Serious: Yes (Other)
  Sender: FDA-Public Use
  Company Number: US-ABBOTT-12P-163-0928104-00

PATIENT
  Age: 64 Year
  Sex: Male

DRUGS (16)
  1. HUMIRA 40 MG/0.8 ML PEN [Suspect]
     Indication: PSORIATIC ARTHROPATHY
     Dosage: EVERY 8-9 DAYS
  2. HUMIRA 40 MG/0.8 ML PEN [Suspect]
     Dosage: EVERY 8-9 DAYS
  3. ST JOHN^S BABY ASPIRIN [Concomitant]
     Indication: PRODUCT USED FOR UNKNOWN INDICATION
  4. LANTUS [Concomitant]
     Indication: DIABETES MELLITUS
     Route: 050
  5. LOVAZA [Concomitant]
     Indication: ARTERIAL DISORDER
  6. TRIBENZOR [Concomitant]
     Indication: HYPERTENSION
  7. ACIPHEX [Concomitant]
     Indication: BARRETT^S OESOPHAGUS
     Dosage: EVERY DAY
  8. ZOLPIDEM [Concomitant]
     Indication: INSOMNIA
     Dosage: AT BEDTIME
  9. CLOBETASOL [Concomitant]
     Indication: PSORIASIS
     Dosage: FOAM
  10. TRIAMCINOLONE [Concomitant]
     Indication: ECZEMA
  11. POTASSIUM [Concomitant]
     Indication: PRODUCT USED FOR UNKNOWN INDICATION
     Dosage: EVERY DAY
  12. FLUOCINOLONE ACETONIDE [Concomitant]
     Indication: PSORIASIS
  13. CENTRUM SILVER [Concomitant]
     Indication: VITAMIN SUPPLEMENTATION
  14. VITAMIN C [Concomitant]
     Indication: PRODUCT USED FOR UNKNOWN INDICATION
     Dosage: 2000-5000 MG EVERY DAY
  15. CARB BLOCKER [Concomitant]
     Indication: SUPPLEMENTATION THERAPY
  16. HERB BALANCE MULTI-VITAMIN WITH GOLD EXTRA [Concomitant]
     Indication: SUPPLEMENTATION THERAPY

REACTIONS (13)
  - Surgery [Unknown]
  - Surgery [Unknown]
  - Surgery [Unknown]
  - Surgery [Unknown]
  - Injection site pain [Unknown]
  - Pruritus [Unknown]
  - Injection site pain [Unknown]
  - Eczema [Unknown]
  - Feeling abnormal [Unknown]
  - Drug effect delayed [Unknown]
  - Drug effect decreased [Unknown]
  - Injection site haemorrhage [Unknown]
  - Back pain [Unknown]
